FAERS Safety Report 4355457-1 (Version None)
Quarter: 2004Q2

REPORT INFORMATION
  Report Type: 
  Country: None (occurrence: None)
  Receive Date: 20040505
  Receipt Date: 20040421
  Transmission Date: 20050107
  Serious: Yes (Disabling)
  Sender: FDA-Public Use
  Company Number: BLOC000541

PATIENT
  Age: 41 Year
  Sex: Female
  Weight: 65 kg

DRUGS (1)
  1. NEUROLOC (BOTULINUM TOXIN TYPE B) [Suspect]
     Indication: DYSTONIA
     Dosage: 12,500 U INTRAMUSCULAR

REACTIONS (6)
  - ACCOMMODATION DISORDER [None]
  - ASTHENIA [None]
  - DRY MOUTH [None]
  - FATIGUE [None]
  - HEADACHE [None]
  - MONOPLEGIA [None]
